FAERS Safety Report 8556249-X (Version None)
Quarter: 2012Q3

REPORT INFORMATION
  Report Type: 
  Country: None (occurrence: None)
  Receive Date: 20120801
  Receipt Date: 20120724
  Transmission Date: 20120928
  Serious: Yes (Hospitalization)
  Sender: FDA-Public Use
  Company Number: US-US-EMD SERONO, INC.-7107547

PATIENT
  Sex: Female
  Weight: 58 kg

DRUGS (3)
  1. REBIF [Suspect]
     Indication: MULTIPLE SCLEROSIS
     Route: 058
     Dates: start: 20110812, end: 20120106
  2. REBIF [Suspect]
     Route: 058
     Dates: start: 20120124
  3. TYLENOL (CAPLET) [Concomitant]
     Indication: PREMEDICATION

REACTIONS (9)
  - COLITIS ISCHAEMIC [None]
  - LIVER FUNCTION TEST ABNORMAL [None]
  - RED BLOOD CELL COUNT ABNORMAL [None]
  - INJECTION SITE DISCOLOURATION [None]
  - WEIGHT DECREASED [None]
  - BRONCHITIS [None]
  - RECTOCELE [None]
  - CONSTIPATION [None]
  - FATIGUE [None]
